FAERS Safety Report 13652045 (Version 1)
Quarter: 2017Q2

REPORT INFORMATION
  Report Type: Spontaneous
  Country: US (occurrence: US)
  Receive Date: 20170614
  Receipt Date: 20170614
  Transmission Date: 20170830
  Serious: Yes (Disabling)
  Sender: FDA-Public Use
  Company Number: None

PATIENT
  Age: 68 Year
  Sex: Female
  Weight: 68.04 kg

DRUGS (4)
  1. METHOTREXATE. [Concomitant]
     Active Substance: METHOTREXATE
  2. HYDROXYCHLOROQUINE [Concomitant]
     Active Substance: HYDROXYCHLOROQUINE
  3. ALIEVE [Concomitant]
  4. LEVOFLOXACIN TABLETS [Suspect]
     Active Substance: LEVOFLOXACIN
     Indication: PNEUMONIA
     Dosage: 1 PILL ONCE DAILY MOUTH??DATE THE PROBLEM OCCURRED 02/16/2017 LEVOFLOXACIN MEDICINE WAS FIRST TAKEN
     Route: 048
     Dates: start: 20170217, end: 20170226

REACTIONS (10)
  - Pain in extremity [None]
  - Musculoskeletal pain [None]
  - Joint stiffness [None]
  - Photopsia [None]
  - Tinnitus [None]
  - Insomnia [None]
  - Dysphonia [None]
  - Tendonitis [None]
  - Gait disturbance [None]
  - Mass [None]
